FAERS Safety Report 5926446-8 (Version None)
Quarter: 2008Q4

REPORT INFORMATION
  Report Type: 
  Country: None (occurrence: None)
  Receive Date: 20081022
  Receipt Date: 20081017
  Transmission Date: 20090506
  Serious: Yes (Other)
  Sender: FDA-Public Use
  Company Number: US-TEVA-177882USA

PATIENT
  Sex: Male
  Weight: 83.99 kg

DRUGS (3)
  1. AMOXICILLIN AND CLAVULANATE POTASSIUM [Suspect]
     Indication: CYSTITIS
     Dosage: 500MG/125MG
     Route: 048
     Dates: start: 20080801
  2. IRON [Concomitant]
  3. FLUDROCORTISONE ACETATE [Concomitant]

REACTIONS (2)
  - DEPRESSION SUICIDAL [None]
  - SUICIDAL IDEATION [None]
